FAERS Safety Report 18098184 (Version 4)
Quarter: 2022Q2

REPORT INFORMATION
  Report Type: Spontaneous
  Country: US (occurrence: None)
  Receive Date: 20200731
  Receipt Date: 20220527
  Transmission Date: 20220720
  Serious: Yes (Other)
  Sender: FDA-Public Use
  Company Number: US-ROCHE-2647812

PATIENT
  Sex: Female

DRUGS (6)
  1. HERCEPTIN [Suspect]
     Active Substance: TRASTUZUMAB
     Indication: HER2 positive breast cancer
     Route: 042
     Dates: start: 201706, end: 201804
  2. HERCEPTIN [Suspect]
     Active Substance: TRASTUZUMAB
     Route: 042
     Dates: start: 202002, end: 2021
  3. PERJETA [Suspect]
     Active Substance: PERTUZUMAB
     Indication: HER2 positive breast cancer
     Route: 042
     Dates: start: 201706, end: 201804
  4. PERJETA [Suspect]
     Active Substance: PERTUZUMAB
     Route: 042
     Dates: start: 202002, end: 2021
  5. FEMARA [Concomitant]
     Active Substance: LETROZOLE
     Dates: start: 2019
  6. ZOLADEX [Concomitant]
     Active Substance: GOSERELIN ACETATE
     Dates: start: 2019

REACTIONS (8)
  - Neoplasm malignant [Not Recovered/Not Resolved]
  - Weight increased [Not Recovered/Not Resolved]
  - Anxiety [Not Recovered/Not Resolved]
  - Hot flush [Unknown]
  - Arthralgia [Unknown]
  - Neuropathy peripheral [Unknown]
  - Bone pain [Unknown]
  - Lymphoedema [Not Recovered/Not Resolved]
